FAERS Safety Report 19753992 (Version 1)
Quarter: 2021Q3

REPORT INFORMATION
  Report Type: Spontaneous
  Country: US (occurrence: US)
  Receive Date: 20210827
  Receipt Date: 20210827
  Transmission Date: 20211014
  Serious: Yes (Disabling)
  Sender: FDA-Public Use
  Company Number: None

PATIENT
  Age: 63 Year
  Sex: Female
  Weight: 74.25 kg

DRUGS (6)
  1. ADDERALL [Concomitant]
     Active Substance: AMPHETAMINE ASPARTATE\AMPHETAMINE SULFATE\DEXTROAMPHETAMINE SACCHARATE\DEXTROAMPHETAMINE SULFATE
  2. ALBUTEROL. [Concomitant]
     Active Substance: ALBUTEROL
  3. CLINDAMYCIN I BELIEVE ABOUT A 10 DAY COURSE OF CLINDAMYCIN [Suspect]
     Active Substance: CLINDAMYCIN
     Indication: TOOTH INFECTION
     Route: 048
  4. BUPROPION. [Concomitant]
     Active Substance: BUPROPION
  5. DULOXETINE. [Concomitant]
     Active Substance: DULOXETINE
  6. CLONAZEPAM. [Concomitant]
     Active Substance: CLONAZEPAM

REACTIONS (8)
  - Impaired quality of life [None]
  - Hypophagia [None]
  - Thirst [None]
  - Infection [None]
  - Illness [None]
  - Nausea [None]
  - Muscle spasms [None]
  - Diarrhoea [None]
